FAERS Safety Report 4558099-8 (Version None)
Quarter: 2005Q1

REPORT INFORMATION
  Report Type: 
  Country: None (occurrence: None)
  Receive Date: 20050121
  Receipt Date: 20040302
  Transmission Date: 20050727
  Serious: No
  Sender: FDA-Public Use
  Company Number: US-BRISTOL-MYERS SQUIBB COMPANY-12746590

PATIENT
  Age: 63 Year
  Sex: Male

DRUGS (1)
  1. SERZONE [Suspect]
     Indication: DEPRESSION
     Dosage: DOSE RANGE:  100-300 MG AT BEDTIME
     Route: 048
     Dates: start: 19990518

REACTIONS (8)
  - ACTINIC KERATOSIS [None]
  - ALANINE AMINOTRANSFERASE INCREASED [None]
  - ANXIETY [None]
  - DECREASED APPETITE [None]
  - DUODENAL ULCER [None]
  - HYPERCHOLESTEROLAEMIA [None]
  - NAUSEA [None]
  - SEXUAL DYSFUNCTION [None]
